FAERS Safety Report 7939651-6 (Version None)
Quarter: 2011Q4

REPORT INFORMATION
  Report Type: 
  Country: None (occurrence: None)
  Receive Date: 20111125
  Receipt Date: 20111110
  Transmission Date: 20120403
  Serious: Yes (Hospitalization, Other)
  Sender: FDA-Public Use
  Company Number: PHHY2008FR27119

PATIENT
  Sex: Male

DRUGS (74)
  1. PARLODEL [Suspect]
     Indication: PARKINSON'S DISEASE
     Dosage: 2.5 MG, TID
     Route: 048
     Dates: start: 19961029, end: 19970224
  2. PARLODEL [Suspect]
     Dosage: 5 MG, TID
     Route: 048
     Dates: start: 19970225, end: 19981026
  3. PARLODEL [Suspect]
     Dosage: 10 MG, QID
     Route: 048
     Dates: start: 20000606, end: 20021114
  4. PERGOLIDE MESYLATE [Suspect]
     Dosage: 0.25 MG, QID
     Route: 048
     Dates: start: 20010516, end: 20010530
  5. PERGOLIDE MESYLATE [Suspect]
     Dosage: 1 MG, QID
     Route: 048
     Dates: start: 20030429, end: 20031028
  6. MADOPAR DISPERSIBLE [Suspect]
     Dosage: 2 DF, QD
     Route: 048
     Dates: start: 20000606, end: 20000802
  7. MADOPAR DISPERSIBLE [Suspect]
     Dosage: 1.5 TAB TWICE + 1 TAB DAILY
     Route: 048
     Dates: start: 20011201
  8. MADOPAR DISPERSIBLE [Suspect]
     Dosage: 3 DF, QD
     Route: 048
     Dates: start: 20050605, end: 20061205
  9. SINEMET [Suspect]
     Dosage: 7 DF, QD
     Route: 048
     Dates: start: 20021115, end: 20031028
  10. SINEMET [Suspect]
     Dosage: 5.5 DF, QD
     Route: 048
     Dates: start: 20010601, end: 20011128
  11. AMANTADINE HCL [Concomitant]
     Dosage: 3 DF, QD
     Route: 048
     Dates: start: 20020312, end: 20020808
  12. MADOPAR [Suspect]
     Dosage: 3 DF, QD
     Route: 048
     Dates: start: 19961029, end: 19980917
  13. MADOPAR DISPERSIBLE [Suspect]
     Dosage: 0.5 DF, QD
     Route: 048
     Dates: start: 20010601, end: 20011128
  14. MADOPAR [Suspect]
     Dosage: 2 DF, QD
     Route: 048
     Dates: start: 19961029, end: 19981025
  15. TASMAR [Suspect]
     Dosage: 3 DF, QD
     Route: 048
     Dates: start: 19981020
  16. SINEMET [Suspect]
     Dosage: 1 DF, QD
     Route: 048
     Dates: start: 20070130
  17. SINEMET [Suspect]
     Dosage: 5.5 TABLETS DAILY
     Route: 048
     Dates: start: 20020312, end: 20021114
  18. SINEMET [Suspect]
     Dosage: 4.5 TABLETS DAILY
     Route: 048
     Dates: start: 20021115
  19. LEXOMIL [Concomitant]
     Dosage: 3 MG, TID
     Route: 048
     Dates: start: 20020808, end: 20021114
  20. HUILE DE PARAFFINE [Concomitant]
     Dosage: 2 DF, QD
     Dates: start: 20020312
  21. IMOVANE [Concomitant]
     Dosage: 1 DF, QD
     Route: 048
     Dates: start: 20021115, end: 20030411
  22. DOPA AND DOPA DERIVATIVES [Concomitant]
     Dosage: 150 MG ON 1ST AND 3RD INTAKE
  23. PARLODEL [Suspect]
     Dosage: 50 MG, QD
     Route: 048
     Dates: start: 20020527, end: 20030412
  24. TRIVASTAL [Suspect]
     Dosage: 2 DF, QD
     Route: 048
     Dates: start: 20070130
  25. MADOPAR [Suspect]
     Dosage: 6 DF, QD
     Route: 048
     Dates: start: 20000606, end: 20000802
  26. MADOPAR [Suspect]
     Dosage: 1 DF, QD
     Route: 048
     Dates: start: 20011129, end: 20031028
  27. MADOPAR DISPERSIBLE [Suspect]
     Dosage: 1 DF, QD
     Route: 048
     Dates: start: 20020303, end: 20030411
  28. SINEMET [Suspect]
     Dosage: 5 DF, QD
     Route: 048
     Dates: start: 20010601, end: 20011128
  29. SINEMET [Suspect]
     Dosage: 6 DF, QD
     Route: 048
     Dates: start: 20011129, end: 20021114
  30. SINEMET [Suspect]
     Dosage: 1 DF, QD
     Route: 048
     Dates: start: 20061206, end: 20070129
  31. SINEMET [Suspect]
     Dosage: 5 DF, QD
     Route: 048
     Dates: start: 20011212, end: 20020311
  32. PROCTOLOG [Concomitant]
     Dosage: UNK
     Route: 054
     Dates: start: 20080803
  33. PAROXETINE HCL [Concomitant]
     Dosage: 1 DF, QD
     Route: 048
     Dates: start: 19981029
  34. PARLODEL [Suspect]
     Dosage: 10 MG, BID
     Dates: start: 20021115
  35. PERGOLIDE MESYLATE [Suspect]
     Indication: PARKINSON'S DISEASE
     Dosage: 1 MG, QID
     Route: 048
     Dates: start: 20010205, end: 20010515
  36. MADOPAR DISPERSIBLE [Suspect]
     Dosage: 0.5 DF, QD
     Route: 048
     Dates: start: 20061206, end: 20070129
  37. MADOPAR DISPERSIBLE [Suspect]
     Dosage: 2 DF, QD
     Route: 048
     Dates: start: 20070320
  38. AMANTADINE HCL [Concomitant]
     Dosage: UNK
     Route: 048
     Dates: start: 20020116, end: 20020311
  39. IMOVANE [Concomitant]
     Dosage: 1 DF, QD
     Route: 048
     Dates: start: 20030412
  40. PARLODEL [Suspect]
     Dosage: 2.5 MG, QID
     Route: 048
     Dates: start: 20010601, end: 20020801
  41. PARLODEL [Suspect]
     Dosage: 50 MG, QD
     Route: 048
     Dates: start: 20001129, end: 20010205
  42. PERGOLIDE MESYLATE [Suspect]
     Dosage: 1 MG, TID
     Route: 048
     Dates: start: 20031029
  43. PERGOLIDE MESYLATE [Suspect]
     Dosage: 1 MG, TID
     Route: 048
     Dates: start: 20050605
  44. MADOPAR [Suspect]
     Dosage: 5 DF, QD
     Route: 048
     Dates: start: 19981026, end: 20000605
  45. MADOPAR [Suspect]
     Dosage: 1
  46. MADOPAR DISPERSIBLE [Suspect]
     Dosage: 0.5 DF, QID
     Route: 048
     Dates: start: 20011129, end: 20011201
  47. MADOPAR [Suspect]
     Dosage: 2 DF, QD
     Route: 048
     Dates: start: 19981026
  48. AMANTADINE HCL [Concomitant]
     Dosage: 3 DF, QD
     Route: 048
     Dates: start: 20020809
  49. KETOCONAZOLE [Concomitant]
     Dosage: 1 DF, QD
     Route: 061
     Dates: start: 20021105
  50. MADOPAR [Suspect]
     Dosage: 5 DF, QD
     Route: 048
     Dates: start: 20000803, end: 20011128
  51. MADOPAR [Suspect]
     Dosage: 5 DF, QD
     Route: 048
     Dates: start: 20031029, end: 20061205
  52. MADOPAR [Suspect]
     Dosage: 4 DF, QD
     Route: 048
     Dates: start: 20061206, end: 20070319
  53. MADOPAR DISPERSIBLE [Suspect]
     Dosage: 1 DF, QD
     Route: 048
     Dates: start: 20000803, end: 20010204
  54. MADOPAR DISPERSIBLE [Suspect]
     Dosage: 1 DF, QD
     Route: 048
     Dates: start: 20031029
  55. MADOPAR DISPERSIBLE [Suspect]
     Dosage: 4 DF, QD
     Route: 048
     Dates: start: 20070130, end: 20070319
  56. TASMAR [Suspect]
     Dosage: 3 DF, QD
     Route: 048
     Dates: start: 19980918, end: 19981019
  57. SINEMET [Suspect]
     Dosage: 4 DF, QD
     Route: 048
     Dates: start: 20010205, end: 20010531
  58. SINEMET [Suspect]
     Dosage: 1 DF, QD
     Route: 048
     Dates: start: 20031029
  59. PROCTOLOG [Concomitant]
     Dosage: UNK
     Route: 054
     Dates: start: 20020312
  60. COMTAN [Concomitant]
     Dosage: 3 DF, QD
     Route: 048
     Dates: start: 20070320
  61. DOPA AND DOPA DERIVATIVES [Concomitant]
     Dosage: 100 MG ON 2ND, 5TH, 4TH INTAKE
  62. PARLODEL [Suspect]
     Dosage: 5 MG, BID
     Route: 048
     Dates: start: 20021115
  63. PARLODEL [Suspect]
     Dosage: 40 MG
  64. TRIVASTAL [Suspect]
     Indication: PARKINSON'S DISEASE
     Dosage: 4 DF, QD
     Route: 048
     Dates: start: 20060619, end: 20070129
  65. MADOPAR [Suspect]
     Dosage: 4 DF, QD
     Route: 048
     Dates: start: 19980918, end: 19981025
  66. LEXOMIL [Concomitant]
     Dosage: 0.25-0.5 TABLET IF NECESSARY
     Dates: start: 19981026
  67. LEXOMIL [Concomitant]
     Dosage: 1.5 MG, TID
     Route: 048
     Dates: start: 20021115
  68. ACTAPULGITE [Concomitant]
     Dosage: 1-2 SACHETS/DAY
     Dates: start: 19981026
  69. MADOPAR [Suspect]
     Dosage: 4 DF, QD
     Route: 048
     Dates: start: 20070320
  70. MADOPAR DISPERSIBLE [Suspect]
     Dosage: 0.5 DF, QID
     Route: 048
     Dates: start: 20010205, end: 20010531
  71. MADOPAR DISPERSIBLE [Suspect]
     Dosage: 1.5 DF, 5QD
     Route: 048
     Dates: start: 20030412, end: 20031028
  72. SINEMET [Suspect]
     Dosage: 6 DF, QD
     Route: 048
     Dates: start: 20011129, end: 20011211
  73. LEXOMIL [Concomitant]
     Dosage: 1.5 MG, QD
     Route: 048
     Dates: start: 20040412
  74. MOTILIUM [Concomitant]
     Dosage: UNK
     Dates: start: 20000606

REACTIONS (15)
  - AKINESIA [None]
  - MYALGIA [None]
  - TREATMENT FAILURE [None]
  - AFFECTIVE DISORDER [None]
  - PARAESTHESIA [None]
  - DRUG DEPENDENCE [None]
  - DYSTONIA [None]
  - INCREASED APPETITE [None]
  - FLIGHT OF IDEAS [None]
  - INSOMNIA [None]
  - MOTOR DYSFUNCTION [None]
  - DYSKINESIA [None]
  - OVERDOSE [None]
  - PATHOLOGICAL GAMBLING [None]
  - ABNORMAL BEHAVIOUR [None]
